FAERS Safety Report 10453827 (Version 2)
Quarter: 2014Q4

REPORT INFORMATION
  Report Type: Spontaneous
  Country: US (occurrence: US)
  Receive Date: 20140915
  Receipt Date: 20141205
  Transmission Date: 20150528
  Serious: No
  Sender: FDA-Public Use
  Company Number: US-BRISTOL-MYERS SQUIBB COMPANY-21297015

PATIENT
  Age: 81 Year
  Sex: Female

DRUGS (8)
  1. DIOVAN [Concomitant]
     Active Substance: VALSARTAN
  2. LASIX [Concomitant]
     Active Substance: FUROSEMIDE
  3. ALBUTEROL. [Concomitant]
     Active Substance: ALBUTEROL
  4. POTASSIUM [Concomitant]
     Active Substance: POTASSIUM
  5. ATIVAN [Concomitant]
     Active Substance: LORAZEPAM
  6. XANAX [Concomitant]
     Active Substance: ALPRAZOLAM
  7. ELIQUIS [Suspect]
     Active Substance: APIXABAN
     Indication: CEREBROVASCULAR ACCIDENT PROPHYLAXIS
     Route: 048
     Dates: start: 20140801, end: 20140811
  8. ASPIRIN. [Concomitant]
     Active Substance: ASPIRIN

REACTIONS (2)
  - Drug intolerance [Not Recovered/Not Resolved]
  - Malaise [Not Recovered/Not Resolved]

NARRATIVE: CASE EVENT DATE: 20140807
